FAERS Safety Report 11873739 (Version 1)
Quarter: 2015Q4

REPORT INFORMATION
  Report Type: Spontaneous
  Country: US (occurrence: US)
  Receive Date: 20151229
  Receipt Date: 20151229
  Transmission Date: 20160305
  Serious: No
  Sender: FDA-Public Use
  Company Number: PHEH2015US026742

PATIENT
  Sex: Male
  Weight: 87.8 kg

DRUGS (1)
  1. TASIGNA [Suspect]
     Active Substance: NILOTINIB
     Indication: ACUTE LEUKAEMIA
     Dosage: 150 MG, QD
     Route: 048

REACTIONS (2)
  - Blood glucose increased [Unknown]
  - Fluid retention [Recovering/Resolving]
